FAERS Safety Report 7346366-4 (Version None)
Quarter: 2011Q1

REPORT INFORMATION
  Report Type: 
  Country: None (occurrence: None)
  Receive Date: 20110311
  Receipt Date: 20110309
  Transmission Date: 20110831
  Serious: Yes (Death)
  Sender: FDA-Public Use
  Company Number: FR-SANOFI-AVENTIS-2011SA014092

PATIENT
  Age: 83 Year
  Sex: Female

DRUGS (4)
  1. LOVENOX [Suspect]
     Route: 058
     Dates: start: 20110124, end: 20110203
  2. DAFALGAN [Concomitant]
     Indication: PAIN
     Route: 048
     Dates: start: 20110124, end: 20110202
  3. MOPRAL [Suspect]
     Route: 048
     Dates: start: 20110124, end: 20110202
  4. CELEBREX [Suspect]
     Indication: PAIN
     Dosage: IN THE EVENING
     Route: 048
     Dates: start: 20110124, end: 20110202

REACTIONS (4)
  - RENAL FAILURE ACUTE [None]
  - ARRHYTHMIA [None]
  - HYPERKALAEMIA [None]
  - METABOLIC ACIDOSIS [None]
